FAERS Safety Report 13489663 (Version 1)
Quarter: 2017Q2

REPORT INFORMATION
  Report Type: Spontaneous
  Country: US (occurrence: US)
  Receive Date: 20170426
  Receipt Date: 20170426
  Transmission Date: 20170830
  Serious: No
  Sender: FDA-Public Use
  Company Number: US-ALKERMES INC.-ALK-2017-001340

PATIENT
  Sex: Male

DRUGS (3)
  1. OTHER THERAPEUTIC PRODUCTS [Suspect]
     Active Substance: UNSPECIFIED INGREDIENT
     Indication: WEIGHT DECREASED
     Route: 065
  2. VIVITROL [Suspect]
     Active Substance: NALTREXONE
     Indication: ALCOHOLISM
     Dosage: 380 MG, QMO
     Route: 030
     Dates: start: 20170324
  3. OTHER THERAPEUTIC PRODUCTS [Concomitant]
     Active Substance: UNSPECIFIED INGREDIENT
     Indication: HYPERTENSION
     Dosage: UNK
     Route: 065

REACTIONS (4)
  - Middle ear effusion [Not Recovered/Not Resolved]
  - Tremor [Recovered/Resolved]
  - Dizziness [Not Recovered/Not Resolved]
  - Pharyngeal disorder [Unknown]

NARRATIVE: CASE EVENT DATE: 2017
